FAERS Safety Report 4965882-3 (Version None)
Quarter: 2006Q2

REPORT INFORMATION
  Report Type: 
  Country: None (occurrence: None)
  Receive Date: 20060407
  Receipt Date: 20060403
  Transmission Date: 20061013
  Serious: Yes (Life-Threatening)
  Sender: FDA-Public Use
  Company Number: PHFR2006GB01325

PATIENT
  Sex: Female

DRUGS (5)
  1. OCTREOTIDE [Suspect]
     Indication: CHYLOTHORAX
     Dosage: 3UG/KG SINGLE DOSE
     Route: 042
     Dates: start: 20060316, end: 20060316
  2. ABBOKINASE [Concomitant]
     Dosage: 500UNITS
     Route: 065
     Dates: start: 20060312
  3. TEICOPLANIN [Concomitant]
     Dosage: 8 MG/KG, QD
     Route: 042
     Dates: end: 20060312
  4. FUROSEMIDE [Concomitant]
     Route: 065
     Dates: end: 20060313
  5. ALBUMIN (HUMAN) [Concomitant]
     Route: 065
     Dates: start: 20060316, end: 20060316

REACTIONS (3)
  - APNOEA [None]
  - BRADYCARDIA [None]
  - FLUSHING [None]
